FAERS Safety Report 14994803 (Version 1)
Quarter: 2018Q2

REPORT INFORMATION
  Report Type: Spontaneous
  Country: US (occurrence: US)
  Receive Date: 20180611
  Receipt Date: 20180611
  Transmission Date: 20180711
  Serious: No
  Sender: FDA-Public Use
  Company Number: US-PFIZER INC-2018235360

PATIENT
  Age: 68 Year
  Sex: Female
  Weight: 58.97 kg

DRUGS (1)
  1. IBRANCE [Suspect]
     Active Substance: PALBOCICLIB
     Indication: BREAST CANCER
     Dosage: 125 MG, CYCLIC(125MG CAPSULE ONCE A DAY FOR 21 DAYS THEN OFF FOR 7 DAYS)
     Route: 048
     Dates: start: 201803, end: 20180531

REACTIONS (1)
  - Neoplasm progression [Unknown]

NARRATIVE: CASE EVENT DATE: 20180605
